FAERS Safety Report 11334451 (Version 2)
Quarter: 2015Q4

REPORT INFORMATION
  Report Type: Other
  Country: IT (occurrence: IT)
  Receive Date: 20150804
  Receipt Date: 20151014
  Transmission Date: 20160304
  Serious: Yes (Death)
  Sender: FDA-Public Use
  Company Number: IT-SUN PHARMACEUTICAL INDUSTRIES LTD-2015SUN01739

PATIENT

DRUGS (4)
  1. RANITIDINE [Concomitant]
     Active Substance: RANITIDINE\RANITIDINE HYDROCHLORIDE
     Indication: PREMEDICATION
     Dosage: 3 VIALS
     Route: 065
  2. KYTRIL [Concomitant]
     Active Substance: GRANISETRON HYDROCHLORIDE
     Indication: PREMEDICATION
     Dosage: 3 MG IN 200 ML OF PHYSIOLOGICAL SOLUTION
     Route: 042
  3. CARBOPLATINO SUN 10 MG/ML CONCENTRATO PER SOLUZIONE PER INFUSIONE [Suspect]
     Active Substance: CARBOPLATIN
     Indication: OVARIAN CANCER
     Dosage: 700 MG IN 500 ML OF PHYSIOLOGICAL SOLUTION; CYCLICAL
     Route: 042
     Dates: start: 20150714, end: 20150714
  4. SOLDESAM [Concomitant]
     Active Substance: DEXAMETHASONE
     Indication: PREMEDICATION
     Dosage: 12 MG, UNK
     Route: 005

REACTIONS (5)
  - Feeling hot [Fatal]
  - Dyspnoea [Fatal]
  - Malaise [Fatal]
  - Cardiac arrest [Fatal]
  - Cyanosis [Fatal]

NARRATIVE: CASE EVENT DATE: 20150714
